FAERS Safety Report 15698874 (Version 1)
Quarter: 2018Q4

REPORT INFORMATION
  Report Type: Spontaneous
  Country: CA (occurrence: CA)
  Receive Date: 20181207
  Receipt Date: 20181207
  Transmission Date: 20190205
  Serious: Yes (Death, Hospitalization)
  Sender: FDA-Public Use
  Company Number: CA-MYLANLABS-2018M1088439

PATIENT
  Age: 31 Year
  Sex: Male

DRUGS (1)
  1. PREDNISONE. [Suspect]
     Active Substance: PREDNISONE
     Indication: ARTHRITIS
     Dosage: A TAPERING REGIMEN OF PREDNISONE WAS PRESCRIBED, STARTING AT 50 MG/DAY
     Route: 065

REACTIONS (8)
  - Dyspnoea at rest [Fatal]
  - Arthritis bacterial [Fatal]
  - Cutaneous blastomycosis [Fatal]
  - Respiratory failure [Fatal]
  - Arthritis fungal [Fatal]
  - Blastomycosis [Fatal]
  - Condition aggravated [Fatal]
  - Multiple organ dysfunction syndrome [Fatal]
